FAERS Safety Report 6756262-9 (Version None)
Quarter: 2010Q2

REPORT INFORMATION
  Report Type: 
  Country: None (occurrence: None)
  Receive Date: 20100603
  Receipt Date: 20100603
  Transmission Date: 20101027
  Serious: Yes (Disabling, Other)
  Sender: FDA-Public Use
  Company Number: None

PATIENT
  Sex: Male
  Weight: 106.5953 kg

DRUGS (4)
  1. AZATHIOPRINE [Suspect]
     Indication: CROHN'S DISEASE
  2. AZULFADINE [Concomitant]
  3. AZATHIOPRINE SODIUM [Concomitant]
  4. METHOTRAXAT AND PREDNISONE [Concomitant]

REACTIONS (4)
  - CONDITION AGGRAVATED [None]
  - CROHN'S DISEASE [None]
  - INFLUENZA LIKE ILLNESS [None]
  - WEIGHT INCREASED [None]
